FAERS Safety Report 5614983-5 (Version None)
Quarter: 2008Q1

REPORT INFORMATION
  Report Type: 
  Country: None (occurrence: None)
  Receive Date: 20080206
  Receipt Date: 20080128
  Transmission Date: 20080703
  Serious: Yes (Other)
  Sender: FDA-Public Use
  Company Number: PHMT2007CA02167

PATIENT
  Age: 69 Year
  Sex: Male
  Weight: 72.562 kg

DRUGS (2)
  1. ZOMETA [Suspect]
     Indication: PROSTATE CANCER
     Dosage: 4 MG, UNK
     Route: 042
  2. ZOLADEX [Concomitant]

REACTIONS (2)
  - OSTEONECROSIS [None]
  - TOOTH INFECTION [None]
